FAERS Safety Report 8807522 (Version 5)
Quarter: 2014Q2

REPORT INFORMATION
  Report Type: Spontaneous
  Country: FR (occurrence: FR)
  Receive Date: 20120925
  Receipt Date: 20131018
  Transmission Date: 20141212
  Serious: Yes (Disabling, Other)
  Sender: FDA-Public Use
  Company Number: FR-PFIZER INC-2010113317

PATIENT
  Age: 28 Year
  Sex: Female

DRUGS (15)
  1. ARACYTINE [Suspect]
     Indication: ACUTE MYELOID LEUKAEMIA
     Dosage: 200 MG/M2 (355 MG FROM D1 TO D2 AND 354 MG FROM D3 TO D7)
     Route: 042
     Dates: start: 19990828, end: 19990903
  2. ARACYTINE [Suspect]
     Dosage: 3000 MG/M2 (5280 MG TWICE DAILY FROM D1 TO D4)
     Route: 042
     Dates: start: 19990913, end: 19990916
  3. BUSULFAN [Suspect]
     Indication: ACUTE MYELOID LEUKAEMIA
     Dosage: 70 MG, 4X/DAY (FROM D1 TO D4)
     Route: 048
     Dates: start: 20000219, end: 20000222
  4. IDARUBICIN HYDROCHLORIDE [Concomitant]
     Indication: ACUTE MYELOID LEUKAEMIA
     Dosage: 8 MG/M2 (14.2 MG ON D1,D2 AND 14.16 MG FROM D3 TO D5)
     Route: 042
     Dates: start: 19990828, end: 19990901
  5. MITOXANTRONE [Concomitant]
     Indication: ACUTE MYELOID LEUKAEMIA
     Dosage: 12 MG/M2, 2X/DAY (21.12 MG PER DAY ON D5 AND D6)
     Dates: start: 19990917, end: 19990918
  6. ENDOXAN [Concomitant]
     Indication: ACUTE MYELOID LEUKAEMIA
     Dosage: 200 MG/KG, UNK
     Dates: start: 1999
  7. AMSACRINE [Concomitant]
     Indication: ACUTE MYELOID LEUKAEMIA
     Dosage: 150 MG/M2 (IE 265.5 MG PER DAY FROM D1 TO D5)
     Route: 042
     Dates: start: 19991209, end: 19991213
  8. VP-16 [Concomitant]
     Indication: ACUTE MYELOID LEUKAEMIA
     Dosage: 100 MG/M2, (176 MG  ON D1 AND 177 MG FROM D2 TO D5)
     Route: 042
     Dates: start: 19991209, end: 19991213
  9. LEVOTHYROX [Concomitant]
     Indication: HYPOTHYROIDISM
     Dosage: 1 DF, 1X/DAY
     Dates: start: 2009
  10. OXYBUTYNIN [Concomitant]
     Dosage: 1 DF, 4X/DAY
  11. PROGESTERONE [Concomitant]
     Dosage: UNK
  12. EDUCTYL [Concomitant]
     Dosage: 1 DF, 1X/DAY
  13. ALENDRONATE SODIUM [Concomitant]
     Dosage: 1 DF, WEEKLY
  14. METHYLPREDNISOLONE [Concomitant]
     Indication: ACUTE MYELOID LEUKAEMIA
     Dosage: 1 MG/KG, (69 MG FROM D1 TO D4)
     Route: 042
     Dates: start: 19990913, end: 19990916
  15. MELPHALAN [Concomitant]
     Indication: ACUTE MYELOID LEUKAEMIA
     Dosage: 140 MG/M2, 1X/DAY (247.8 MG ON D5)
     Route: 042
     Dates: start: 20000223, end: 20000223

REACTIONS (6)
  - Toxic skin eruption [Unknown]
  - Myelitis transverse [Not Recovered/Not Resolved]
  - Premature menopause [Not Recovered/Not Resolved]
  - Cerebellar syndrome [Not Recovered/Not Resolved]
  - Alopecia [Not Recovered/Not Resolved]
  - Mucosal inflammation [Recovered/Resolved]
